FAERS Safety Report 4933363-9 (Version None)
Quarter: 2006Q1

REPORT INFORMATION
  Report Type: 
  Country: None (occurrence: None)
  Receive Date: 20060306
  Receipt Date: 20050218
  Transmission Date: 20060701
  Serious: Yes (Hospitalization, Other)
  Sender: FDA-Public Use
  Company Number: US-MERCK-0502USA02913

PATIENT
  Age: 57 Year
  Sex: Female
  Weight: 86 kg

DRUGS (4)
  1. VIOXX [Suspect]
     Indication: ARTHRITIS
     Route: 048
     Dates: start: 20000523, end: 20040903
  2. AVAPRO [Concomitant]
     Route: 065
  3. LIPITOR [Concomitant]
     Route: 065
  4. INSULIN [Concomitant]
     Route: 065

REACTIONS (7)
  - CEREBRAL ARTERY OCCLUSION [None]
  - CEREBROVASCULAR ACCIDENT [None]
  - INJURY [None]
  - MYOCARDIAL INFARCTION [None]
  - PALPITATIONS [None]
  - RENAL DISORDER [None]
  - UPPER LIMB FRACTURE [None]
